FAERS Safety Report 21447058 (Version 1)
Quarter: 2022Q4

REPORT INFORMATION
  Report Type: Report from Study
  Country: US (occurrence: US)
  Receive Date: 20221012
  Receipt Date: 20221012
  Transmission Date: 20230113
  Serious: No
  Sender: FDA-Public Use
  Company Number: US-ABBVIE-4147315

PATIENT
  Sex: Female
  Weight: 83.46 kg

DRUGS (5)
  1. SKYRIZI [Suspect]
     Active Substance: RISANKIZUMAB-RZAA
     Indication: Illness
     Dosage: 150 MG
     Route: 058
     Dates: start: 202206
  2. SKYRIZI [Suspect]
     Active Substance: RISANKIZUMAB-RZAA
     Dosage: 150 MG
  3. MODERNA COVID (12Y UP)VAC(EUA [Concomitant]
     Indication: COVID-19 immunisation
     Route: 030
  4. TYLENOL [Concomitant]
     Active Substance: ACETAMINOPHEN
     Indication: Product used for unknown indication
  5. IBUPROFEN [Concomitant]
     Active Substance: IBUPROFEN
     Indication: Product used for unknown indication

REACTIONS (4)
  - Psoriatic arthropathy [Not Recovered/Not Resolved]
  - SARS-CoV-2 test positive [Unknown]
  - Psoriasis [Recovered/Resolved]
  - Therapeutic product effect incomplete [Unknown]

NARRATIVE: CASE EVENT DATE: 20220101
